FAERS Safety Report 6841563-6 (Version None)
Quarter: 2010Q3

REPORT INFORMATION
  Report Type: 
  Country: None (occurrence: None)
  Receive Date: 20100714
  Receipt Date: 20070709
  Transmission Date: 20110219
  Serious: No
  Sender: FDA-Public Use
  Company Number: US-PFIZER INC-2007058584

PATIENT
  Sex: Female
  Weight: 61.2 kg

DRUGS (5)
  1. CHANTIX [Suspect]
     Indication: SMOKING CESSATION THERAPY
     Route: 048
     Dates: start: 20070629
  2. SYNTHROID [Suspect]
     Indication: HYPOTHYROIDISM
  3. ALLEGRA [Concomitant]
  4. XANAX [Concomitant]
  5. MICARDIS HCT [Concomitant]

REACTIONS (5)
  - CONSTIPATION [None]
  - DISORIENTATION [None]
  - HEADACHE [None]
  - NAUSEA [None]
  - SOMNOLENCE [None]
